FAERS Safety Report 7986371-8 (Version None)
Quarter: 2011Q4

REPORT INFORMATION
  Report Type: 
  Country: None (occurrence: None)
  Receive Date: 20111216
  Receipt Date: 20110225
  Transmission Date: 20120403
  Serious: No
  Sender: FDA-Public Use
  Company Number: US-GLAXOSMITHKLINE-A0915400A

PATIENT
  Age: 59 Year
  Sex: Female

DRUGS (3)
  1. PRONESTYL [Concomitant]
  2. COREG CR [Suspect]
     Indication: HYPERTENSION
     Dosage: 20MG PER DAY
     Route: 048
     Dates: end: 20110223
  3. LOTREL [Concomitant]

REACTIONS (1)
  - BLOOD PRESSURE INCREASED [None]
